FAERS Safety Report 7972986-X (Version None)
Quarter: 2011Q4

REPORT INFORMATION
  Report Type: 
  Country: None (occurrence: None)
  Receive Date: 20111213
  Receipt Date: 20111206
  Transmission Date: 20120403
  Serious: Yes (Death, Hospitalization, Other)
  Sender: FDA-Public Use
  Company Number: US-PFIZER INC-HQWYE993722OCT04

PATIENT
  Sex: Female

DRUGS (5)
  1. PROVERA [Suspect]
     Indication: HORMONE REPLACEMENT THERAPY
     Dosage: UNK
     Route: 048
     Dates: start: 19840101, end: 19960101
  2. MEDROXYPROGESTERONE ACETATE [Suspect]
     Indication: HORMONE REPLACEMENT THERAPY
     Dosage: UNK
     Route: 048
  3. PREMARIN [Suspect]
     Indication: HORMONE REPLACEMENT THERAPY
     Dosage: 0.3 MG, UNK
     Route: 048
     Dates: start: 19840101, end: 20020101
  4. PROVERA [Suspect]
     Dosage: UNK
     Route: 048
     Dates: start: 19940906, end: 20020507
  5. PREMARIN [Suspect]
     Dosage: 0.3 MG, UNK
     Route: 048
     Dates: start: 19970404, end: 20020504

REACTIONS (1)
  - BREAST CANCER METASTATIC [None]
